FAERS Safety Report 4300443-0 (Version None)
Quarter: 2004Q1

REPORT INFORMATION
  Report Type: 
  Country: None (occurrence: None)
  Receive Date: 20040218
  Receipt Date: 20040209
  Transmission Date: 20041129
  Serious: Yes (Other)
  Sender: FDA-Public Use
  Company Number: CA-SHR-04-020753

PATIENT
  Age: 28 Year
  Sex: Female
  Weight: 86 kg

DRUGS (1)
  1. MIRENA [Suspect]
     Dosage: 20 UG/DAY, CONT, INRA-UTERINE
     Route: 015
     Dates: start: 20030520

REACTIONS (2)
  - KERATITIS [None]
  - KERATOCONJUNCTIVITIS SICCA [None]
